FAERS Safety Report 17082049 (Version 7)
Quarter: 2022Q4

REPORT INFORMATION
  Report Type: Spontaneous
  Country: FR (occurrence: FR)
  Receive Date: 20191127
  Receipt Date: 20221101
  Transmission Date: 20230113
  Serious: Yes (Other)
  Sender: FDA-Public Use
  Company Number: FR-MYLANLABS-2019M1114992

PATIENT
  Age: 58 Year
  Sex: Female

DRUGS (7)
  1. RITONAVIR [Interacting]
     Active Substance: RITONAVIR
     Indication: HIV infection
     Dosage: 100 MILLIGRAM (BOOSTED BY 100MG)
     Route: 065
  2. RITONAVIR [Interacting]
     Active Substance: RITONAVIR
     Indication: Antiretroviral therapy
     Dosage: UNK
     Route: 065
  3. QUETIAPINE [Interacting]
     Active Substance: QUETIAPINE
     Indication: Bipolar disorder
     Dosage: 150 MILLIGRAM, QD (PROLONGED-RELEASE FORM)
     Route: 065
  4. QUETIAPINE [Interacting]
     Active Substance: QUETIAPINE
     Dosage: UNK
     Route: 065
  5. DARUNAVIR [Interacting]
     Active Substance: DARUNAVIR
     Indication: HIV infection
     Dosage: 800 MILLIGRAM
     Route: 065
  6. DARUNAVIR [Interacting]
     Active Substance: DARUNAVIR
     Indication: Antiretroviral therapy
     Dosage: UNK
     Route: 065
  7. DARUNAVIR\RITONAVIR [Interacting]
     Active Substance: DARUNAVIR\RITONAVIR
     Indication: HIV infection
     Dosage: 800 MG BOOSTED WITH 100 MG OF RITONAVIR
     Route: 065

REACTIONS (8)
  - Psychomotor retardation [Unknown]
  - Electrocardiogram QT prolonged [Unknown]
  - Psychomotor skills impaired [Unknown]
  - Treatment noncompliance [Unknown]
  - Syncope [Unknown]
  - Drug interaction [Unknown]
  - Overdose [Unknown]
  - Contraindicated product administered [Unknown]
